FAERS Safety Report 15596753 (Version 1)
Quarter: 2018Q4

REPORT INFORMATION
  Report Type: Spontaneous
  Country: GB (occurrence: GB)
  Receive Date: 20181108
  Receipt Date: 20181108
  Transmission Date: 20190205
  Serious: Yes (Hospitalization)
  Sender: FDA-Public Use
  Company Number: GB-TEVA-2018-GB-972381

PATIENT
  Age: 10 Year

DRUGS (3)
  1. FLUCLOXACILLIN [Concomitant]
     Active Substance: FLUCLOXACILLIN
     Dosage: 12 GRAM
     Route: 041
     Dates: start: 20180929, end: 20180930
  2. BENZYLPENICILLIN [Concomitant]
     Active Substance: PENICILLIN G
     Dosage: 2.4 GRAM
     Route: 041
     Dates: start: 20180930, end: 20180930
  3. VANCOMYCIN [Suspect]
     Active Substance: VANCOMYCIN
     Indication: CELLULITIS
     Dosage: 560 MG
     Route: 041
     Dates: start: 20180930, end: 20181001

REACTIONS (4)
  - Red man syndrome [Recovered/Resolved]
  - Pruritus [Recovered/Resolved]
  - Dyspnoea [Recovered/Resolved]
  - Rash erythematous [Recovered/Resolved]

NARRATIVE: CASE EVENT DATE: 20180930
